FAERS Safety Report 11604455 (Version 1)
Quarter: 2015Q4

REPORT INFORMATION
  Report Type: Spontaneous
  Country: US (occurrence: US)
  Receive Date: 20151007
  Receipt Date: 20151007
  Transmission Date: 20160304
  Serious: No
  Sender: FDA-Public Use
  Company Number: US-WATSON-2015-17419

PATIENT
  Sex: Male

DRUGS (1)
  1. GUANFACINE (AELLC) [Suspect]
     Active Substance: GUANFACINE
     Indication: ATTENTION DEFICIT/HYPERACTIVITY DISORDER
     Dosage: 2 MG UNKNOWN
     Route: 065

REACTIONS (1)
  - Drug ineffective [Recovered/Resolved]
